FAERS Safety Report 6570781-X (Version None)
Quarter: 2010Q1

REPORT INFORMATION
  Report Type: 
  Country: None (occurrence: None)
  Receive Date: 20100121
  Receipt Date: 20100121
  Transmission Date: 20100710
  Serious: Yes (Other)
  Sender: FDA-Public Use
  Company Number: None

PATIENT
  Age: 69 Year
  Sex: Male
  Weight: 92.9874 kg

DRUGS (13)
  1. RAD001 EVEROLIMUS  NDA 22334 [Suspect]
     Indication: THYROID CANCER
     Dosage: 10 MG / QD / PO
     Route: 048
     Dates: start: 20091209, end: 20091229
  2. ALTACE [Concomitant]
  3. GLIPIZIDE [Concomitant]
  4. INSULIN [Concomitant]
  5. LEVOTHYROXINE SODIUM [Concomitant]
  6. METFORMIN [Concomitant]
  7. METOPROLOL TARTRATE [Concomitant]
  8. MULTI-VITAMIN [Concomitant]
  9. TUMS [Concomitant]
  10. VITAMIN C [Concomitant]
  11. ZOCOR [Concomitant]
  12. ASPIRIN [Concomitant]
  13. HYDROCHLOROTHIAZIDE [Concomitant]

REACTIONS (1)
  - EPISTAXIS [None]
